FAERS Safety Report 20860999 (Version 6)
Quarter: 2022Q3

REPORT INFORMATION
  Report Type: Spontaneous
  Country: US (occurrence: US)
  Receive Date: 20220523
  Receipt Date: 20220815
  Transmission Date: 20221027
  Serious: No
  Sender: FDA-Public Use
  Company Number: US-GLAXOSMITHKLINE-US2022AMR081875

PATIENT
  Sex: Female

DRUGS (4)
  1. ZEJULA [Suspect]
     Active Substance: NIRAPARIB
     Indication: Ovarian cancer
     Dosage: 100 MG, QD
  2. ZEJULA [Suspect]
     Active Substance: NIRAPARIB
     Dosage: UNK UNK, Z (DOSING 200MG MON, WED, FRI AND 100MG TUE, TH, SAT, SUN)
  3. ZEJULA [Suspect]
     Active Substance: NIRAPARIB
     Dosage: 100 MG, QOD
  4. ZEJULA [Suspect]
     Active Substance: NIRAPARIB
     Dosage: 2 CAPSULE MON, WED, FRI AND 1 CAP EVERY TUE, THRUS, SAT , SUN
     Dates: start: 20220809

REACTIONS (8)
  - Nausea [Not Recovered/Not Resolved]
  - Fatigue [Not Recovered/Not Resolved]
  - Cough [Unknown]
  - Adverse drug reaction [Unknown]
  - Poor quality sleep [Unknown]
  - Insomnia [Unknown]
  - Quality of life decreased [Unknown]
  - Inappropriate schedule of product administration [Unknown]
